FAERS Safety Report 4725701-7 (Version None)
Quarter: 2005Q3

REPORT INFORMATION
  Report Type: 
  Country: None (occurrence: None)
  Receive Date: 20050722
  Receipt Date: 20050722
  Transmission Date: 20060218
  Serious: Yes (Disabling)
  Sender: FDA-Public Use
  Company Number: None

PATIENT
  Age: 48 Year
  Sex: Female
  Weight: 56.6996 kg

DRUGS (1)
  1. ZICAM N/A ZICAM COLD REMEDY/MATRIXX [Suspect]
     Indication: NASOPHARYNGITIS
     Dosage: ZICM NASAL NASAL SPRAY NASAL
     Route: 045
     Dates: start: 20041109, end: 20041113

REACTIONS (2)
  - AGEUSIA [None]
  - ANOSMIA [None]
